FAERS Safety Report 4661070-9 (Version None)
Quarter: 2005Q2

REPORT INFORMATION
  Report Type: 
  Country: None (occurrence: None)
  Receive Date: 20050511
  Receipt Date: 20050427
  Transmission Date: 20051028
  Serious: No
  Sender: FDA-Public Use
  Company Number: 10957

PATIENT
  Age: 46 Year
  Sex: Female

DRUGS (1)
  1. EPHEDRINE SUL CAP [Suspect]

REACTIONS (1)
  - VENTRICULAR TACHYCARDIA [None]
